FAERS Safety Report 4285767-8 (Version None)
Quarter: 2004Q1

REPORT INFORMATION
  Report Type: 
  Country: None (occurrence: None)
  Receive Date: 20040205
  Receipt Date: 20040127
  Transmission Date: 20041129
  Serious: Yes (Hospitalization)
  Sender: FDA-Public Use
  Company Number: JP-BRISTOL-MYERS SQUIBB COMPANY-12494308

PATIENT
  Age: 2 Year
  Sex: Male

DRUGS (6)
  1. IFOMIDE [Suspect]
     Indication: HEPATOBLASTOMA
  2. CISPLATIN [Suspect]
     Indication: HEPATOBLASTOMA
  3. ETOPOSIDE [Suspect]
     Indication: AUTOLOGOUS BONE MARROW TRANSPLANTATION THERAPY
  4. PARAPLATIN [Suspect]
     Indication: AUTOLOGOUS BONE MARROW TRANSPLANTATION THERAPY
  5. ALKERAN [Suspect]
     Indication: AUTOLOGOUS BONE MARROW TRANSPLANTATION THERAPY
  6. PIRARUBICIN [Suspect]
     Indication: HEPATOBLASTOMA

REACTIONS (3)
  - FANCONI SYNDROME ACQUIRED [None]
  - RENAL ATROPHY [None]
  - RENAL TUBULAR DISORDER [None]
